FAERS Safety Report 4388194-8 (Version None)
Quarter: 2004Q2

REPORT INFORMATION
  Report Type: 
  Country: None (occurrence: None)
  Receive Date: 20040629
  Receipt Date: 20040629
  Transmission Date: 20050107
  Serious: Yes (Hospitalization)
  Sender: FDA-Public Use
  Company Number: None

PATIENT
  Age: 20 Year
  Sex: Male

DRUGS (7)
  1. OLANZAPINE [Suspect]
     Indication: BIPOLAR DISORDER
     Dosage: 15 MG HS ORAL
     Route: 048
     Dates: start: 20040613, end: 20040625
  2. CARBAMAZEPINE [Concomitant]
  3. NICOTINE PATCHES [Concomitant]
  4. ACETAMINOPHEN [Concomitant]
  5. MYLANTA [Concomitant]
  6. DULCOLAX [Concomitant]
  7. BENADRYL [Concomitant]

REACTIONS (1)
  - CONVULSION [None]
